FAERS Safety Report 23200072 (Version 2)
Quarter: 2023Q4

REPORT INFORMATION
  Report Type: Spontaneous
  Country: US (occurrence: US)
  Receive Date: 20231117
  Receipt Date: 20231207
  Transmission Date: 20240109
  Serious: No
  Sender: FDA-Public Use
  Company Number: US-ABBVIE-5499563

PATIENT
  Age: 38 Year
  Sex: Male

DRUGS (1)
  1. SKYRIZI [Suspect]
     Active Substance: RISANKIZUMAB-RZAA
     Indication: Psoriasis
     Route: 058
     Dates: end: 2023

REACTIONS (11)
  - Illness [Unknown]
  - Psoriasis [Unknown]
  - Nasal congestion [Unknown]
  - Burning sensation [Unknown]
  - Musculoskeletal stiffness [Unknown]
  - Palpitations [Unknown]
  - Insomnia [Unknown]
  - Migraine [Unknown]
  - Acne [Unknown]
  - Hyperhidrosis [Unknown]
  - Chills [Unknown]

NARRATIVE: CASE EVENT DATE: 20230801
